FAERS Safety Report 7269286-2 (Version None)
Quarter: 2011Q1

REPORT INFORMATION
  Report Type: 
  Country: None (occurrence: None)
  Receive Date: 20110124
  Receipt Date: 20100414
  Transmission Date: 20110831
  Serious: No
  Sender: FDA-Public Use
  Company Number: 2010-000383

PATIENT
  Age: 25 Year
  Sex: Male
  Weight: 108.8633 kg

DRUGS (2)
  1. ZICAM COLD REMEDY PLUS LIQUI-LOZ [Suspect]
     Dosage: Q 3 HOURS, 2 DAYS
     Dates: start: 20100409, end: 20100411
  2. ZICAM COLD REMEDY CHEWABLES [Suspect]
     Dosage: Q 3 HOURS, 4 DAYS
     Dates: start: 20100411, end: 20100414

REACTIONS (1)
  - AGEUSIA [None]
